FAERS Safety Report 8474186-6 (Version None)
Quarter: 2012Q2

REPORT INFORMATION
  Report Type: 
  Country: None (occurrence: None)
  Receive Date: 20120628
  Receipt Date: 20120625
  Transmission Date: 20120825
  Serious: No
  Sender: FDA-Public Use
  Company Number: US-PFIZER INC-2012153609

PATIENT
  Sex: Female

DRUGS (6)
  1. CELEBREX [Suspect]
     Dosage: UNK
  2. LAMICTAL [Concomitant]
     Dosage: 100 MG, UNK
  3. CODEINE PHOSPHATE AND PARACETAMOL [Concomitant]
     Dosage: UNK
  4. FLEXERIL [Concomitant]
     Dosage: UNK
  5. PRISTIQ [Concomitant]
     Dosage: 100 MG, UNK
  6. XANAX [Concomitant]
     Dosage: 1 MG, UNK

REACTIONS (1)
  - DRUG INEFFECTIVE [None]
